FAERS Safety Report 10265170 (Version 1)
Quarter: 2014Q2

REPORT INFORMATION
  Report Type: Spontaneous
  Country: US (occurrence: None)
  Receive Date: 20140530
  Receipt Date: 20140530
  Transmission Date: 20141212
  Serious: Yes (Other)
  Sender: FDA-Public Use
  Company Number: 2013034927

PATIENT
  Sex: Female
  Weight: 83.46 kg

DRUGS (1)
  1. HIZENTRA (IMMUNOGLOBULIN HUMAN NORMAL) [Suspect]
     Indication: IMMUNODEFICIENCY COMMON VARIABLE
     Dosage: 10 G OF 1200 ML/HR SUBCUTANEOUS
     Route: 058
     Dates: start: 20130304, end: 20130304

REACTIONS (4)
  - Chest discomfort [None]
  - Diarrhoea [None]
  - Pyrexia [None]
  - Infusion site reaction [None]
